FAERS Safety Report 14183566 (Version 1)
Quarter: 2017Q4

REPORT INFORMATION
  Report Type: Spontaneous
  Country: US (occurrence: US)
  Receive Date: 20171113
  Receipt Date: 20171113
  Transmission Date: 20180321
  Serious: No
  Sender: FDA-Public Use
  Company Number: US-AQUA PHARMACEUTICALS-2016AQU000367

PATIENT
  Sex: Female

DRUGS (1)
  1. VERDESO [Suspect]
     Active Substance: DESONIDE
     Indication: DRY SKIN
     Dosage: UNK
     Route: 061
     Dates: start: 20161214

REACTIONS (2)
  - Accidental exposure to product [Unknown]
  - Eye pain [Not Recovered/Not Resolved]

NARRATIVE: CASE EVENT DATE: 20161214
